FAERS Safety Report 8448099-X (Version None)
Quarter: 2012Q2

REPORT INFORMATION
  Report Type: 
  Country: None (occurrence: None)
  Receive Date: 20120619
  Receipt Date: 20120606
  Transmission Date: 20120825
  Serious: Yes (Hospitalization)
  Sender: FDA-Public Use
  Company Number: IT-ELI_LILLY_AND_COMPANY-IT201206002166

PATIENT
  Sex: Female

DRUGS (16)
  1. MODURETIC 5-50 [Concomitant]
  2. LASIX [Concomitant]
  3. LANTUS [Concomitant]
     Indication: DIABETES MELLITUS
     Dosage: 22 IU, QD
     Route: 058
     Dates: start: 20120101
  4. RANITIDINE HCL [Concomitant]
  5. LEVOFLOXACIN [Concomitant]
     Dosage: 1 DF, QD
     Route: 048
     Dates: start: 20120527, end: 20120527
  6. DEURSIL [Concomitant]
  7. ZOLOFT [Concomitant]
  8. LEVOTHYROXINE SODIUM [Concomitant]
  9. ENOXAPARIN SODIUM [Concomitant]
  10. ADALAT [Concomitant]
  11. ALLOPURINOL [Concomitant]
  12. ENALAPRIL MALEATE [Concomitant]
     Dosage: 10 MG, UNK
     Route: 048
  13. CHLORDESMETHYLDIAZEPAM [Concomitant]
  14. HUMALOG [Suspect]
     Indication: DIABETES MELLITUS
     Dosage: 24 IU, QD
     Route: 058
     Dates: start: 20070101
  15. SIMVASTATIN [Concomitant]
     Dosage: 20 MG, UNK
     Route: 048
  16. PLAVIX [Concomitant]

REACTIONS (2)
  - URTICARIA [None]
  - HYPOGLYCAEMIA [None]
